FAERS Safety Report 7529413-6 (Version None)
Quarter: 2011Q2

REPORT INFORMATION
  Report Type: 
  Country: None (occurrence: None)
  Receive Date: 20110607
  Receipt Date: 20110527
  Transmission Date: 20111010
  Serious: Yes (Hospitalization, Other)
  Sender: FDA-Public Use
  Company Number: US-ASTRAZENECA-2010SE47587

PATIENT
  Age: 74 Year
  Sex: Female

DRUGS (3)
  1. ATACAND [Suspect]
     Route: 048
  2. NEXIUM [Suspect]
     Route: 048
  3. TOPROL-XL [Suspect]
     Route: 048

REACTIONS (8)
  - NEOPLASM MALIGNANT [None]
  - INTESTINAL OPERATION [None]
  - PIGMENTATION DISORDER [None]
  - CARDIAC DISORDER [None]
  - RENAL CYST [None]
  - MALAISE [None]
  - INTESTINAL OBSTRUCTION [None]
  - DIVERTICULITIS [None]
